FAERS Safety Report 25327467 (Version 1)
Quarter: 2025Q2

REPORT INFORMATION
  Report Type: Spontaneous
  Country: IT (occurrence: IT)
  Receive Date: 20250517
  Receipt Date: 20250517
  Transmission Date: 20250716
  Serious: Yes (Hospitalization)
  Sender: XELLIA PHARMACEUTICALS
  Company Number: IT-Axellia-005601

PATIENT
  Age: 66 Year
  Sex: Male

DRUGS (1)
  1. COLISTIMETHATE SODIUM [Suspect]
     Active Substance: COLISTIMETHATE SODIUM
     Indication: Acinetobacter infection
     Route: 042
     Dates: start: 202206, end: 202206

REACTIONS (1)
  - Pathogen resistance [Unknown]
